FAERS Safety Report 12233814 (Version 1)
Quarter: 2016Q2

REPORT INFORMATION
  Report Type: Spontaneous
  Country: NL (occurrence: NL)
  Receive Date: 20160404
  Receipt Date: 20160404
  Transmission Date: 20160815
  Serious: Yes (Death)
  Sender: FDA-Public Use
  Company Number: NL-TEVA-646996ACC

PATIENT
  Age: 70 Year
  Sex: Male

DRUGS (5)
  1. LEVOCETIRIZINE TABLET FO 5MG [Concomitant]
     Dosage: 5 MILLIGRAM DAILY; ONCE DAILY ONE PIECE
     Route: 048
  2. METHOTREXATE TABLET 25MG [Suspect]
     Active Substance: METHOTREXATE
     Dosage: ONCE WEEKLY 5 PIECES. ADDITIONAL INFO: METHREXATE 25 MG, ORALLY EVERY WEEK 5 + 5 TABL (WEDNESDAY)
     Route: 048
     Dates: start: 2011, end: 20160321
  3. FOLIUMZUUR TABLET 5MG [Concomitant]
     Active Substance: FOLIC ACID
     Dosage: FOUR TIMES A WEEK ONE PIECE
     Route: 048
  4. PANTOZOL TABLET MSR 40MG [Concomitant]
     Dosage: 40 MILLIGRAM DAILY; ONCE DAILY ONE PIECE
     Route: 048
  5. CELEBREX CAPSULE 200MG [Concomitant]
     Dosage: 400 MILLIGRAM DAILY; TWICE DAILY ONE PIECE
     Route: 048

REACTIONS (2)
  - Pancytopenia [Fatal]
  - Sepsis [Fatal]

NARRATIVE: CASE EVENT DATE: 20160321
